FAERS Safety Report 5066283-2 (Version None)
Quarter: 2006Q3

REPORT INFORMATION
  Report Type: 
  Country: None (occurrence: None)
  Receive Date: 20060706
  Receipt Date: 20050711
  Transmission Date: 20061208
  Serious: Yes (Life-Threatening)
  Sender: FDA-Public Use
  Company Number: 1866

PATIENT
  Age: 37 Year
  Sex: Female
  Weight: 107.0489 kg

DRUGS (4)
  1. AVINZA [Suspect]
     Indication: LIGAMENT SPRAIN
     Dosage: 30 MG QD PO
     Route: 048
     Dates: start: 20050708, end: 20050709
  2. CARISOPRODOL [Concomitant]
  3. GABAPENTIN [Concomitant]
  4. HYDROCODONE BITARTRATE + ACETAMINOPHEN [Concomitant]

REACTIONS (1)
  - HYPERSENSITIVITY [None]
